FAERS Safety Report 4592099-7 (Version None)
Quarter: 2005Q1

REPORT INFORMATION
  Report Type: 
  Country: None (occurrence: None)
  Receive Date: 20050125
  Receipt Date: 20041122
  Transmission Date: 20050727
  Serious: No
  Sender: FDA-Public Use
  Company Number: USA040774087

PATIENT
  Age: 70 Year
  Sex: Female
  Weight: 65 kg

DRUGS (8)
  1. FORTEO [Suspect]
     Indication: OSTEOPOROSIS
     Dosage: 20 UG/1 DAY
     Dates: start: 20040101
  2. EFFEXOR [Concomitant]
  3. NEURONTIN [Concomitant]
  4. CALCIUM WITH VITAMIN D [Concomitant]
  5. FOSAMAX [Concomitant]
  6. BEXTRA [Concomitant]
  7. PREDNISONE [Concomitant]
  8. MULTI-VITAMIN [Concomitant]

REACTIONS (25)
  - ABDOMINAL DISCOMFORT [None]
  - ARTHRALGIA [None]
  - BACK PAIN [None]
  - BACTERIAL INFECTION [None]
  - BLOOD ALKALINE PHOSPHATASE INCREASED [None]
  - BLOOD CHOLESTEROL INCREASED [None]
  - BLOOD TRIGLYCERIDES INCREASED [None]
  - C-REACTIVE PROTEIN INCREASED [None]
  - CATARACT OPERATION [None]
  - CONSTIPATION [None]
  - DEPRESSION [None]
  - DIZZINESS [None]
  - FATIGUE [None]
  - FUNGAL INFECTION [None]
  - HAEMOGLOBIN DECREASED [None]
  - HEART RATE INCREASED [None]
  - HYPERTENSION [None]
  - JOINT CREPITATION [None]
  - LOW DENSITY LIPOPROTEIN INCREASED [None]
  - MEMORY IMPAIRMENT [None]
  - PCO2 INCREASED [None]
  - RED BLOOD CELL SEDIMENTATION RATE INCREASED [None]
  - RED CELL DISTRIBUTION WIDTH DECREASED [None]
  - TONGUE INJURY [None]
  - URINE ANALYSIS ABNORMAL [None]
